FAERS Safety Report 16526397 (Version 4)
Quarter: 2020Q1

REPORT INFORMATION
  Report Type: Spontaneous
  Country: US (occurrence: US)
  Receive Date: 20190703
  Receipt Date: 20200214
  Transmission Date: 20200409
  Serious: Yes (Other)
  Sender: FDA-Public Use
  Company Number: US-PFIZER INC-2019285917

PATIENT
  Age: 84 Year
  Sex: Female
  Weight: 77.56 kg

DRUGS (9)
  1. LYRICA [Suspect]
     Active Substance: PREGABALIN
     Indication: DIABETIC NEUROPATHY
     Dosage: 175 MG, DAILY (75 MG TWICE A DAY WITH 25 MG AT NIGHT AS NEEDED)
  2. LYRICA [Suspect]
     Active Substance: PREGABALIN
     Dosage: 175 MG, DAILY (75 MG TWICE A DAY AS NEEDED AND TAKE 1 CAPSULE OF 25 MG WITH 75 MG AT NIGHT)
     Route: 048
  3. ATORVASTATIN [Concomitant]
     Active Substance: ATORVASTATIN
     Indication: BLOOD CHOLESTEROL ABNORMAL
     Dosage: UNK
  4. HUMALOG [Concomitant]
     Active Substance: INSULIN LISPRO
     Indication: DIABETES MELLITUS
     Dosage: ONE UNIT FOR EVERY 15 CARBS AT LUNCH AND DINNER, NORMALLY 2 UNITS OF INSULIN UP TO 5 UNIT
  5. LYRICA [Suspect]
     Active Substance: PREGABALIN
     Indication: PAIN IN EXTREMITY
     Dosage: 75 MG, 2X/DAY
     Route: 048
  6. TYLENOL [Concomitant]
     Active Substance: ACETAMINOPHEN
     Indication: PAIN
     Dosage: 500 MG, AS NEEDED (500MG ONE CAPLET BY MOUTH 3-4 TIMES A DAY BY MOUTH AS NEEDED)
     Route: 048
     Dates: start: 201906
  7. CALCIUM + VIT D [Concomitant]
     Active Substance: CALCIUM\VITAMIN D
     Dosage: UNK
  8. LYRICA [Suspect]
     Active Substance: PREGABALIN
     Indication: NEUROPATHY PERIPHERAL
     Dosage: 75 MG, AS NEEDED
     Route: 048
  9. GLIPIZIDE. [Concomitant]
     Active Substance: GLIPIZIDE
     Indication: DIABETES MELLITUS
     Dosage: 2.5 MG, 1X/DAY (ONE TABLET ONCE A DAY IN THE MORNING)
     Route: 048

REACTIONS (1)
  - Lower limb fracture [Unknown]
